FAERS Safety Report 17019079 (Version 1)
Quarter: 2019Q4

REPORT INFORMATION
  Report Type: Spontaneous
  Country: US (occurrence: US)
  Receive Date: 20191112
  Receipt Date: 20191112
  Transmission Date: 20200122
  Serious: Yes (Hospitalization)
  Sender: FDA-Public Use
  Company Number: US-TEVA-2019-US-1135225

PATIENT
  Age: 46 Year
  Sex: Female

DRUGS (3)
  1. GLIMEPIRIDE. [Suspect]
     Active Substance: GLIMEPIRIDE
     Dosage: SHE INTENTIONALLY INGESTED 120 TABLETS OF GLIMEPIRIDE
     Route: 048
  2. DIVALPROEX [Suspect]
     Active Substance: DIVALPROEX SODIUM
     Indication: BIPOLAR DISORDER
     Dosage: SHE INTENTIONALLY INGESTED {30 TABLETS COMBINED OF LURASIDONE AND VALPROATE SEMISODIUM
     Route: 048
  3. LURASIDONE [Suspect]
     Active Substance: LURASIDONE
     Indication: BIPOLAR DISORDER
     Dosage: SHE INTENTIONALLY INGESTED {30 TABLETS COMBINED OF LURASIDONE AND VALPROATE SEMISODIUM
     Route: 048

REACTIONS (2)
  - Intentional overdose [Unknown]
  - Hypoglycaemia [Recovered/Resolved]
